FAERS Safety Report 13166854 (Version 2)
Quarter: 2017Q2

REPORT INFORMATION
  Report Type: Spontaneous
  Country: US (occurrence: US)
  Receive Date: 20170131
  Receipt Date: 20170417
  Transmission Date: 20170830
  Serious: Yes (Other)
  Sender: FDA-Public Use
  Company Number: US-PURDUE-USA-2017-0136179

PATIENT
  Age: 75 Year
  Sex: Female
  Weight: 83.9 kg

DRUGS (11)
  1. SENOKOT [Suspect]
     Active Substance: SENNOSIDES
     Dosage: 2 TABLET, HS
     Route: 048
     Dates: start: 20170120
  2. TYLENOL [Concomitant]
     Active Substance: ACETAMINOPHEN
     Indication: ARTHRITIS
     Dosage: UNK, PRN
     Route: 065
  3. PREMARIN [Concomitant]
     Active Substance: ESTROGENS, CONJUGATED
     Indication: URINARY TRACT INFECTION
     Dosage: 0.50 G (MONDAY, WEDNESDAY AND FRIDAY), UNK
     Route: 065
     Dates: start: 2016
  4. SENOKOT [Suspect]
     Active Substance: SENNOSIDES
     Indication: CONSTIPATION
     Dosage: 2 TABLET, HS
     Route: 048
     Dates: start: 20170124
  5. ZYRTEC [Concomitant]
     Active Substance: CETIRIZINE HYDROCHLORIDE
     Indication: HYPERSENSITIVITY
     Dosage: 10 MG, UNK
     Route: 065
  6. SENOKOT [Suspect]
     Active Substance: SENNOSIDES
     Dosage: 2 TABLET, HS
     Route: 048
     Dates: start: 20170122
  7. SENOKOT [Suspect]
     Active Substance: SENNOSIDES
     Dosage: 1 TABLET, HS
     Route: 048
     Dates: start: 20170121
  8. SENOKOT [Suspect]
     Active Substance: SENNOSIDES
     Dosage: 1 TABLET, HS
     Route: 048
     Dates: start: 20170119
  9. TYLENOL [Concomitant]
     Active Substance: ACETAMINOPHEN
     Indication: PAIN
  10. SENOKOT [Suspect]
     Active Substance: SENNOSIDES
     Dosage: 2 TABLET, HS
     Route: 048
     Dates: start: 20170123
  11. PREMARIN [Concomitant]
     Active Substance: ESTROGENS, CONJUGATED
     Indication: UNEVALUABLE EVENT

REACTIONS (3)
  - Rectal tenesmus [Unknown]
  - Haematochezia [Unknown]
  - Constipation [Unknown]

NARRATIVE: CASE EVENT DATE: 20170120
